FAERS Safety Report 8495850-9 (Version None)
Quarter: 2012Q3

REPORT INFORMATION
  Report Type: 
  Country: None (occurrence: None)
  Receive Date: 20120709
  Receipt Date: 20120705
  Transmission Date: 20120928
  Serious: Yes (Other)
  Sender: FDA-Public Use
  Company Number: PHEH2012US012337

PATIENT
  Sex: Female
  Weight: 89.456 kg

DRUGS (8)
  1. MELOXICAM [Concomitant]
     Dosage: 15 MG, UNK
  2. XANAX [Concomitant]
     Dosage: UNK UKN, UNK
     Route: 048
  3. GILENYA [Suspect]
     Indication: RELAPSING-REMITTING MULTIPLE SCLEROSIS
     Dosage: 0.5 MG, QD
     Route: 048
     Dates: start: 20120201
  4. NEURONTIN [Concomitant]
     Dosage: UNK UKN, UNK
     Route: 048
  5. IRON SUPPLEMENTS [Concomitant]
     Dosage: UNK UKN, UNK
     Route: 048
  6. MIRAPEX [Concomitant]
     Dosage: 0.125 MG, DAILY
     Route: 048
  7. LEXAPRO [Concomitant]
     Dosage: 10 MG, UNK
     Route: 048
  8. OMEPRAZOLE [Concomitant]
     Dosage: 40 MG, QD
     Route: 048

REACTIONS (1)
  - BASAL CELL CARCINOMA [None]
